FAERS Safety Report 10778867 (Version 1)
Quarter: 2015Q1

REPORT INFORMATION
  Report Type: Spontaneous
  Country: US (occurrence: US)
  Receive Date: 20150210
  Receipt Date: 20150210
  Transmission Date: 20150721
  Serious: No
  Sender: FDA-Public Use
  Company Number: US-TEVA-529131USA

PATIENT
  Sex: Female
  Weight: 90.8 kg

DRUGS (9)
  1. PANTOPRAZOLE [Suspect]
     Active Substance: PANTOPRAZOLE SODIUM
     Indication: GASTROOESOPHAGEAL REFLUX DISEASE
     Dosage: 40 MILLIGRAM DAILY;
  2. ZANTAC [Concomitant]
     Active Substance: RANITIDINE HYDROCHLORIDE
     Indication: GASTROOESOPHAGEAL REFLUX DISEASE
  3. ADVAIR HFA [Concomitant]
     Active Substance: FLUTICASONE PROPIONATE\SALMETEROL XINAFOATE
  4. RANITIDINE [Suspect]
     Active Substance: RANITIDINE\RANITIDINE HYDROCHLORIDE
  5. SINGULAIR [Concomitant]
     Active Substance: MONTELUKAST SODIUM
  6. PROVENTIL [Concomitant]
     Active Substance: ALBUTEROL
  7. MONTELUKAST [Suspect]
     Active Substance: MONTELUKAST SODIUM
  8. LEVOTHYROXINE [Concomitant]
     Active Substance: LEVOTHYROXINE
  9. THEOPHYLLINE [Suspect]
     Active Substance: THEOPHYLLINE ANHYDROUS

REACTIONS (6)
  - Dyspnoea [Unknown]
  - Product substitution issue [Unknown]
  - Dyspepsia [Unknown]
  - Drug ineffective [Unknown]
  - Gastric disorder [Unknown]
  - Asthma [Unknown]
